FAERS Safety Report 16970618 (Version 1)
Quarter: 2019Q4

REPORT INFORMATION
  Report Type: Spontaneous
  Country: US (occurrence: US)
  Receive Date: 20191029
  Receipt Date: 20191029
  Transmission Date: 20200122
  Serious: Yes (Hospitalization)
  Sender: FDA-Public Use
  Company Number: US-AVION PHARMACEUTICALS, LLC-2076138

PATIENT
  Age: 32 Year
  Sex: Female

DRUGS (2)
  1. BALCOLTRA [Suspect]
     Active Substance: ETHINYL ESTRADIOL\LEVONORGESTREL
     Indication: CONTRACEPTION
     Route: 065
  2. METHYLPREDNISOLONE. [Suspect]
     Active Substance: METHYLPREDNISOLONE
     Route: 042

REACTIONS (9)
  - Malaise [Unknown]
  - Blindness [Recovering/Resolving]
  - Diplopia [Recovered/Resolved]
  - Nausea [Unknown]
  - Headache [Recovered/Resolved]
  - Dizziness [Unknown]
  - Visual impairment [Recovering/Resolving]
  - Vomiting [Unknown]
  - Tinnitus [Unknown]
